FAERS Safety Report 17534110 (Version 4)
Quarter: 2020Q2

REPORT INFORMATION
  Report Type: Report from Study
  Country: US (occurrence: US)
  Receive Date: 20200312
  Receipt Date: 20200604
  Transmission Date: 20200713
  Serious: Yes (Other)
  Sender: FDA-Public Use
  Company Number: NVSC2020US069596

PATIENT
  Age: 73 Year
  Sex: Female

DRUGS (4)
  1. ENTRESTO [Suspect]
     Active Substance: SACUBITRIL\VALSARTAN
     Dosage: 1.5DF (24MG SACUBITRIL /26MGVALSARTAN), BID
     Route: 048
     Dates: start: 2020
  2. LASIX [Concomitant]
     Active Substance: FUROSEMIDE
     Indication: PRODUCT USED FOR UNKNOWN INDICATION
     Dosage: UNK
     Route: 065
  3. ENTRESTO [Suspect]
     Active Substance: SACUBITRIL\VALSARTAN
     Dosage: UNK(DOSE REDUCED)
     Route: 048
     Dates: start: 2020
  4. ENTRESTO [Suspect]
     Active Substance: SACUBITRIL\VALSARTAN
     Indication: CARDIAC FAILURE
     Dosage: 1 DF (24MG SACUBITRIL /26MGVALSARTAN), BID
     Route: 048
     Dates: start: 20200305

REACTIONS (6)
  - Vomiting [Unknown]
  - Hypotension [Not Recovered/Not Resolved]
  - Blood iron decreased [Unknown]
  - Nausea [Unknown]
  - Wrong technique in product usage process [Unknown]
  - Renal impairment [Unknown]

NARRATIVE: CASE EVENT DATE: 202003
